FAERS Safety Report 22858631 (Version 7)
Quarter: 2024Q2

REPORT INFORMATION
  Report Type: Spontaneous
  Country: CA (occurrence: CA)
  Receive Date: 20230824
  Receipt Date: 20240621
  Transmission Date: 20240716
  Serious: Yes (Other)
  Sender: FDA-Public Use
  Company Number: CA-002147023-NVSC2023CA179018

PATIENT
  Age: 21 Year
  Sex: Female

DRUGS (45)
  1. MOXIFLOXACIN HYDROCHLORIDE [Suspect]
     Active Substance: MOXIFLOXACIN HYDROCHLORIDE\MOXIFLOXACIN HYDROCHLORIDE MONOHYDRATE
     Dosage: 1 DF(4 EVERY 1 DAYS)
     Route: 065
  2. MOXIFLOXACIN HYDROCHLORIDE [Suspect]
     Active Substance: MOXIFLOXACIN HYDROCHLORIDE\MOXIFLOXACIN HYDROCHLORIDE MONOHYDRATE
     Indication: Product used for unknown indication
     Dosage: 1 DOSAGE FORM, QID
     Route: 047
  3. MOXIFLOXACIN HYDROCHLORIDE [Suspect]
     Active Substance: MOXIFLOXACIN HYDROCHLORIDE\MOXIFLOXACIN HYDROCHLORIDE MONOHYDRATE
     Dosage: 0.5 PERCENT, QID
     Route: 065
  4. AMOXICILLIN [Concomitant]
     Active Substance: AMOXICILLIN
     Indication: Product used for unknown indication
     Dosage: 1 DOSAGE FORM, TID
     Route: 048
     Dates: start: 20230727
  5. LORAZEPAM [Concomitant]
     Active Substance: LORAZEPAM
     Indication: Product used for unknown indication
     Dosage: 1 DOSAGE FORM, PRN
     Route: 048
  6. CETIRIZINE [Concomitant]
     Active Substance: CETIRIZINE HYDROCHLORIDE
     Indication: Product used for unknown indication
     Dosage: UNK UNK, PRN
     Route: 048
  7. DANAZOL [Concomitant]
     Active Substance: DANAZOL
     Indication: Endometriosis
     Dosage: UNK (HORMONAL THERAPY)
     Route: 065
  8. DANAZOL [Concomitant]
     Active Substance: DANAZOL
     Indication: Endometriosis
     Dosage: UNK
     Route: 065
  9. DEXAMETHASONE [Concomitant]
     Active Substance: DEXAMETHASONE
     Indication: Product used for unknown indication
     Dosage: UNK
     Route: 061
  10. EFFEXOR [Concomitant]
     Active Substance: VENLAFAXINE HYDROCHLORIDE
     Indication: Product used for unknown indication
     Dosage: UNK
     Route: 065
  11. ENBREL [Concomitant]
     Active Substance: BENZYL ALCOHOL\ETANERCEPT
     Indication: Product used for unknown indication
     Dosage: UNK MG
     Route: 058
     Dates: start: 2013, end: 2015
  12. FUCIDIN [Concomitant]
     Active Substance: FUSIDATE SODIUM
     Indication: Product used for unknown indication
     Dosage: UNK, BID
     Route: 061
  13. HUMIRA [Concomitant]
     Active Substance: ADALIMUMAB
     Indication: Product used for unknown indication
     Dosage: UNK(SOLUTION SUBCUTANEOUS)
     Route: 058
     Dates: start: 2015, end: 2019
  14. IBUPROFEN [Concomitant]
     Active Substance: IBUPROFEN
     Indication: Product used for unknown indication
     Dosage: UNK
     Route: 048
     Dates: start: 2012, end: 2015
  15. LORAZEPAM [Concomitant]
     Active Substance: LORAZEPAM
     Indication: Product used for unknown indication
     Dosage: 1 DF
     Route: 048
  16. MARVELON [Concomitant]
     Active Substance: DESOGESTREL\ETHINYL ESTRADIOL
     Dosage: UNK
     Route: 048
  17. MARVELON [Concomitant]
     Active Substance: DESOGESTREL\ETHINYL ESTRADIOL
     Indication: Product used for unknown indication
     Dosage: UNK (0.15 TO 0.03 MG)
     Route: 048
  18. METHOTREXATE [Concomitant]
     Active Substance: METHOTREXATE
     Indication: Product used for unknown indication
     Dosage: UNK
     Route: 058
  19. METHOTREXATE SODIUM [Concomitant]
     Active Substance: METHOTREXATE SODIUM
     Indication: Product used for unknown indication
     Dosage: UNK
     Route: 058
     Dates: start: 2012, end: 2015
  20. NAPROXEN [Concomitant]
     Active Substance: NAPROXEN
     Indication: Product used for unknown indication
     Dosage: UNK
     Route: 048
     Dates: start: 2012, end: 2015
  21. PERIDEX [Concomitant]
     Active Substance: CHLORHEXIDINE GLUCONATE
     Indication: Product used for unknown indication
     Dosage: UNK
     Route: 061
     Dates: start: 20230725
  22. PREDNISONE [Concomitant]
     Active Substance: PREDNISONE
     Dosage: 25 MG (PREDNISONE TAPER 25 MG FOR 3 DAYS, DECREASING BY 5 MG EVERY 3 DAYS UNTIL OFF)
     Route: 065
  23. PREDNISONE [Concomitant]
     Active Substance: PREDNISONE
     Indication: Product used for unknown indication
     Dosage: UNK
     Route: 048
     Dates: start: 2013
  24. SIMPONI [Concomitant]
     Active Substance: GOLIMUMAB
     Dosage: 50 MG, Q2W
     Route: 058
  25. SIMPONI [Concomitant]
     Active Substance: GOLIMUMAB
     Dosage: UNK
     Route: 058
     Dates: start: 2020, end: 20230725
  26. SIMPONI [Concomitant]
     Active Substance: GOLIMUMAB
     Dosage: UNK
     Route: 058
  27. SIMPONI [Concomitant]
     Active Substance: GOLIMUMAB
     Dosage: UNK
     Route: 065
  28. SIMPONI [Concomitant]
     Active Substance: GOLIMUMAB
     Indication: Product used for unknown indication
     Dosage: UNK (50 MG/0.5 ML, FORMULATION: PEN)
     Route: 065
  29. SIMPONI [Concomitant]
     Active Substance: GOLIMUMAB
     Dosage: UNK(SOLUTION SUBCUTANEOUS)
     Route: 058
     Dates: start: 2020, end: 20230725
  30. TRAZODONE HCL [Concomitant]
     Active Substance: TRAZODONE HYDROCHLORIDE
     Indication: Product used for unknown indication
     Dosage: 1 DOSAGE FORM, QD
     Route: 048
  31. VENLAFAXINE HYDROCHLORIDE [Concomitant]
     Active Substance: VENLAFAXINE HYDROCHLORIDE
     Dosage: 1.0 DF(1 EVERY 1 DAYS)
     Route: 048
  32. VENLAFAXINE HYDROCHLORIDE [Concomitant]
     Active Substance: VENLAFAXINE HYDROCHLORIDE
     Dosage: 1.0 DF(1 EVERY 1 DAYS)
     Route: 048
  33. VENLAFAXINE HYDROCHLORIDE [Concomitant]
     Active Substance: VENLAFAXINE HYDROCHLORIDE
     Dosage: 112.5 MG
     Route: 065
  34. VENLAFAXINE HYDROCHLORIDE [Concomitant]
     Active Substance: VENLAFAXINE HYDROCHLORIDE
     Indication: Product used for unknown indication
     Dosage: UNK
     Route: 065
  35. FOLIC ACID [Interacting]
     Active Substance: FOLIC ACID
     Indication: Product used for unknown indication
     Dosage: 5 MG, QW (1 TABLET 1X.WEEK X 12 WEEKS)
     Route: 048
  36. FOLIC ACID [Interacting]
     Active Substance: FOLIC ACID
     Dosage: 1 EVERY 1 WEEKS
     Route: 048
  37. LEFLUNOMIDE [Interacting]
     Active Substance: LEFLUNOMIDE
     Indication: Product used for unknown indication
     Dosage: 20 MG, QD (1 TABLET QD X 12 WEEKS)
     Route: 048
     Dates: start: 202303, end: 202306
  38. METHOTREXATE [Interacting]
     Active Substance: METHOTREXATE
     Dosage: 1 DOSAGE FORM, QW
     Route: 048
  39. METHOTREXATE [Interacting]
     Active Substance: METHOTREXATE
     Indication: Product used for unknown indication
     Dosage: 2.5 MG, QW (10 TABLETS 1X/WEEK X 12 WEEKS)
     Route: 048
     Dates: start: 201209, end: 201211
  40. METHOTREXATE [Interacting]
     Active Substance: METHOTREXATE
     Dosage: 2.5 MG, QW (10 TABLETS 1X/WEEK X 12 WEEKS)
     Route: 048
     Dates: start: 201209, end: 201211
  41. METHOTREXATE [Interacting]
     Active Substance: METHOTREXATE
     Dosage: 25 MG, QW; 1 EVERY 1 WEEKS; 852 DAYS
     Route: 065
  42. METHOTREXATE [Interacting]
     Active Substance: METHOTREXATE
     Dosage: UNK
     Route: 065
     Dates: end: 2015
  43. METHOTREXATE [Interacting]
     Active Substance: METHOTREXATE
     Dosage: UNK
     Route: 065
  44. VIGAMOX [Interacting]
     Active Substance: MOXIFLOXACIN HYDROCHLORIDE
     Dosage: 0.5 %(4 EVERY 1 DAYS)
     Route: 065
  45. VIGAMOX [Interacting]
     Active Substance: MOXIFLOXACIN HYDROCHLORIDE
     Indication: Product used for unknown indication
     Dosage: 0.5 %, QID (ROUTE: GGT)
     Route: 065
     Dates: start: 20230413

REACTIONS (9)
  - Juvenile idiopathic arthritis [Unknown]
  - Joint swelling [Unknown]
  - Iridocyclitis [Unknown]
  - Uveitis [Unknown]
  - Pain [Unknown]
  - Drug interaction [Unknown]
  - Diarrhoea [Unknown]
  - Sinusitis [Unknown]
  - Drug ineffective [Unknown]

NARRATIVE: CASE EVENT DATE: 20230101
